FAERS Safety Report 8673634 (Version 2)
Quarter: 2012Q4

REPORT INFORMATION
  Report Type: 
  Country: US (occurrence: US)
  Receive Date: 20120719
  Receipt Date: 20121019
  Transmission Date: 20130627
  Serious: Yes (Other)
  Sender: FDA-Public Use
  Company Number: US-BRISTOL-MYERS SQUIBB COMPANY-16687527

PATIENT
  Age: 87 Year
  Sex: Male

DRUGS (4)
  1. YERVOY [Suspect]
     Indication: METASTATIC MALIGNANT MELANOMA
     Dosage: 1st, 11-May-12, 2nd 01-jun-12, last dose on 22-Jun-12.
80% of drug was infused and then stopped.
     Route: 042
     Dates: start: 20120601
  2. ASPIRIN [Concomitant]
  3. NIMESULIDE [Concomitant]
  4. INSULIN [Concomitant]

REACTIONS (1)
  - Infusion related reaction [Recovered/Resolved]
